FAERS Safety Report 7102792-X (Version None)
Quarter: 2010Q4

REPORT INFORMATION
  Report Type: 
  Country: None (occurrence: None)
  Receive Date: 20101108
  Receipt Date: 20101021
  Transmission Date: 20110411
  Serious: Yes (Hospitalization, Other)
  Sender: FDA-Public Use
  Company Number: 2010003530

PATIENT
  Age: 69 Year
  Sex: Female
  Weight: 40.6 kg

DRUGS (16)
  1. ERLOTINIB HYDROCHLORIDE [Suspect]
     Indication: LUNG ADENOCARCINOMA
     Dosage: (150 MG, QD), ORAL
     Route: 048
     Dates: start: 20090420, end: 20100607
  2. ZOMETA [Concomitant]
  3. FAMOTIDINE [Concomitant]
  4. KADIAN [Concomitant]
  5. MUCOSTA (REBAMIPIDE) [Concomitant]
  6. NOVAMIN (PROCHLORPERAZINE) [Concomitant]
  7. DICLOFENAC SODIUM [Concomitant]
  8. CODEINE PHOSPHATE (CODEINE PHOSPHATE) [Concomitant]
  9. OPSO (MORPHINE) [Concomitant]
  10. WAKADENIN [Concomitant]
  11. MAGNESIUM OXIDE (MAGNESIUM OXIDE) [Concomitant]
  12. NERIPROCT (NERIPROCT) [Concomitant]
  13. PLATIBIT (ALFACALCIDOL) [Concomitant]
  14. LIPITOR [Concomitant]
  15. HYALEIN (HYALURONATE SODIUM) [Concomitant]
  16. REMODELLIN (ALFACALCIDOL) [Concomitant]

REACTIONS (26)
  - DERMATITIS ACNEIFORM [None]
  - ECZEMA [None]
  - EFFUSION [None]
  - ERYTHEMA [None]
  - FACE OEDEMA [None]
  - HAIR DISORDER [None]
  - HEADACHE [None]
  - HYPOCALCAEMIA [None]
  - INFECTION [None]
  - INGROWING NAIL [None]
  - MALIGNANT NEOPLASM PROGRESSION [None]
  - NON-SMALL CELL LUNG CANCER METASTATIC [None]
  - PAIN [None]
  - PARONYCHIA [None]
  - PRURITUS GENERALISED [None]
  - PURPURA [None]
  - RASH [None]
  - RASH PUSTULAR [None]
  - SCAB [None]
  - SEBORRHOEIC DERMATITIS [None]
  - SKIN EROSION [None]
  - SKIN EXFOLIATION [None]
  - SKIN FISSURES [None]
  - SKIN ODOUR ABNORMAL [None]
  - STAPHYLOCOCCUS TEST POSITIVE [None]
  - XERODERMA [None]
